FAERS Safety Report 6263801-3 (Version None)
Quarter: 2009Q3

REPORT INFORMATION
  Report Type: 
  Country: None (occurrence: None)
  Receive Date: 20090710
  Receipt Date: 20090709
  Transmission Date: 20100115
  Serious: Yes (Death, Other)
  Sender: FDA-Public Use
  Company Number: PHEH2008US06599

PATIENT
  Sex: Male

DRUGS (13)
  1. ZOMETA [Suspect]
     Indication: METASTASES TO BONE
     Dosage: UNK
     Route: 042
     Dates: start: 20070611, end: 20080401
  2. CHEMOTHERAPEUTICS NOS [Concomitant]
  3. RADIATION THERAPY [Concomitant]
  4. COUMADIN [Concomitant]
  5. SORAFENIB [Concomitant]
     Dosage: UNK
     Dates: start: 20070801, end: 20071201
  6. HYDROCODONE BITARTRATE [Concomitant]
  7. MORPHINE SULFATE [Concomitant]
  8. DEXAMETHASONE [Concomitant]
  9. ENALAPRIL [Concomitant]
  10. OMEPRAZOLE [Concomitant]
  11. MULTI-VITAMINS [Concomitant]
  12. FERROUS SULFATE TAB [Concomitant]
  13. LACTULOSE [Concomitant]

REACTIONS (28)
  - ABDOMINAL PAIN [None]
  - ANXIETY [None]
  - BACTERIAL DISEASE CARRIER [None]
  - BONE DISORDER [None]
  - CELLULITIS [None]
  - COMPRESSION FRACTURE [None]
  - DEATH [None]
  - DECREASED INTEREST [None]
  - DEHYDRATION [None]
  - DIZZINESS [None]
  - DYSPNOEA [None]
  - DYSPNOEA EXERTIONAL [None]
  - EPISTAXIS [None]
  - HYPONATRAEMIA [None]
  - HYPOTENSION [None]
  - INJURY [None]
  - INTESTINAL PERFORATION [None]
  - NAUSEA [None]
  - OSTEONECROSIS [None]
  - PAIN [None]
  - PAIN IN EXTREMITY [None]
  - PULMONARY CONGESTION [None]
  - RALES [None]
  - SMALL INTESTINAL OBSTRUCTION [None]
  - TUMOUR EMBOLISM [None]
  - VASCULAR CAUTERISATION [None]
  - VOMITING [None]
  - WOUND DEHISCENCE [None]
